FAERS Safety Report 12060976 (Version 1)
Quarter: 2016Q1

REPORT INFORMATION
  Report Type: Spontaneous
  Country: US (occurrence: US)
  Receive Date: 20160210
  Receipt Date: 20160210
  Transmission Date: 20160526
  Serious: No
  Sender: FDA-Public Use
  Company Number: US-ASTRAZENECA-2016SE10612

PATIENT
  Age: 2165 Week
  Sex: Female
  Weight: 106.1 kg

DRUGS (5)
  1. CRESTOR [Suspect]
     Active Substance: ROSUVASTATIN CALCIUM
     Indication: BLOOD CHOLESTEROL ABNORMAL
     Route: 048
     Dates: start: 20160127
  2. ALLEGRA [Concomitant]
     Active Substance: FEXOFENADINE HYDROCHLORIDE
     Indication: MULTIPLE ALLERGIES
     Dosage: INTERMITTENT
     Route: 048
  3. PUMPKIN SEED OIL SUPPLIMENT [Concomitant]
     Dosage: DAILY
     Route: 048
  4. CINNAMON OIL SUPPLIMENT [Concomitant]
     Dosage: DAILY
     Route: 048
  5. PROBIOTIC [Concomitant]
     Active Substance: PROBIOTICS NOS
     Dosage: DAILY
     Route: 048

REACTIONS (6)
  - Rhinorrhoea [Unknown]
  - Malaise [Unknown]
  - Asthenia [Unknown]
  - Throat irritation [Unknown]
  - Muscular weakness [Unknown]
  - Myalgia [Unknown]

NARRATIVE: CASE EVENT DATE: 20160128
